FAERS Safety Report 9206545 (Version 1)
Quarter: 2013Q1

REPORT INFORMATION
  Report Type: Spontaneous
  Country: US (occurrence: None)
  Receive Date: 20120731
  Receipt Date: 20120731
  Transmission Date: 20140127
  Serious: Yes (Hospitalization, Other)
  Sender: FDA-Public Use
  Company Number: US201204004878

PATIENT
  Age: 62 Year
  Sex: Male

DRUGS (15)
  1. BYETTA [Suspect]
     Indication: DIABETES MELLITUS
     Route: 058
  2. VICODIN (HYDROCODONE BITRATRATE, PARACETAMOL) [Concomitant]
  3. ASPIRIN (ACETYLSALICYLIC ACID) [Concomitant]
  4. AVODART (DUTASTERIDE) [Concomitant]
  5. CENTRUM (MINERALS NOS, VITAMINS NOS) [Concomitant]
  6. DESOXIMETASONE (DESOXIMETASONE) [Concomitant]
  7. FLOMAX (TAMSULOSIN HYDROCHLORIDE) [Concomitant]
  8. LIPITOR (ATORVASTATIN CALCIUM) [Concomitant]
  9. LOVAZA (OMEGA-3 MARINE TRIGLYCERIDE) [Concomitant]
  10. PAROXETINE (PAROXETINE) [Concomitant]
  11. RANITIDINE (RANITIDINE) [Suspect]
  12. TARKA (TRANDOLAPRIL, VERAPAMIL HYDROCHLORIDE) [Concomitant]
  13. TRICOR (FENOFIBRATE) [Concomitant]
  14. VALTREX (VALACICLOVIR HYDROCHLORIDE) [Concomitant]
  15. XYZAL (LEVOCETIRIZINE DIHYDROCHLORIDE) [Concomitant]

REACTIONS (2)
  - Pancreatitis acute [None]
  - Pancreatitis relapsing [None]
